FAERS Safety Report 9375901 (Version 2)
Quarter: 2013Q4

REPORT INFORMATION
  Report Type: Spontaneous
  Country: US (occurrence: US)
  Receive Date: 20130628
  Receipt Date: 20131213
  Transmission Date: 20140711
  Serious: Yes (Death, Hospitalization)
  Sender: FDA-Public Use
  Company Number: US-B.I. PHARMACEUTICALS,INC./RIDGEFIELD-2013-BI-18561BP

PATIENT
  Sex: Male
  Weight: 117.93 kg

DRUGS (8)
  1. PRADAXA [Suspect]
     Indication: ANTICOAGULANT THERAPY
     Dosage: 300 MG
     Dates: start: 20110607, end: 20120403
  2. ALPRAZOLAM XR [Concomitant]
     Dosage: 1.5 MG
  3. RANITIDINE [Concomitant]
     Dosage: 300 MG
  4. LISINOPRIL [Concomitant]
     Dosage: 40 MG
  5. METOPROLOL [Concomitant]
     Dosage: 100 MG
     Route: 048
  6. ASPIRIN [Concomitant]
     Dosage: 81 MG
  7. TRIAMTERENE/HYDROCHLOROTHIAZIDE [Concomitant]
     Route: 048
  8. AUGMENTIN [Concomitant]

REACTIONS (6)
  - Gastrointestinal haemorrhage [Fatal]
  - Pneumonia [Unknown]
  - Acute respiratory failure [Unknown]
  - Renal failure acute [Unknown]
  - Acute coronary syndrome [Unknown]
  - Septic shock [Unknown]
